FAERS Safety Report 16322827 (Version 14)
Quarter: 2022Q4

REPORT INFORMATION
  Report Type: Report from Study
  Country: AR (occurrence: AR)
  Receive Date: 20190516
  Receipt Date: 20221101
  Transmission Date: 20230112
  Serious: Yes (Hospitalization, Other)
  Sender: FDA-Public Use
  Company Number: AR-AMGEN-ARGSL2019047426

PATIENT
  Age: 69 Year
  Sex: Female

DRUGS (5)
  1. VECTIBIX [Suspect]
     Active Substance: PANITUMUMAB
     Indication: Colorectal cancer metastatic
     Dosage: UNK UNK, Q2WK (EVERY 14 DAYS)
     Route: 065
     Dates: start: 20181001
  2. VECTIBIX [Suspect]
     Active Substance: PANITUMUMAB
     Dosage: UNK UNK, QMO (REDUCED DOSE)
     Route: 065
     Dates: start: 2019
  3. VECTIBIX [Suspect]
     Active Substance: PANITUMUMAB
     Dosage: EVERY 21 DAYS, OR WHEN INDICATED BY THE DOCTOR
     Route: 065
  4. VECTIBIX [Suspect]
     Active Substance: PANITUMUMAB
     Dosage: UNK UNK, QMO
     Route: 065
  5. BENADRYL [Concomitant]
     Active Substance: DIPHENHYDRAMINE HYDROCHLORIDE
     Dosage: UNK

REACTIONS (16)
  - Lacrimation increased [Unknown]
  - Diarrhoea [Unknown]
  - Haemorrhage [Not Recovered/Not Resolved]
  - Clostridium difficile infection [Unknown]
  - General physical health deterioration [Unknown]
  - Sensitive skin [Unknown]
  - Skin irritation [Not Recovered/Not Resolved]
  - Skin burning sensation [Not Recovered/Not Resolved]
  - Rash erythematous [Not Recovered/Not Resolved]
  - Rash pruritic [Not Recovered/Not Resolved]
  - Dry skin [Not Recovered/Not Resolved]
  - Skin fissures [Not Recovered/Not Resolved]
  - Off label use [Unknown]
  - Tumour marker increased [Not Recovered/Not Resolved]
  - Somnolence [Not Recovered/Not Resolved]
  - Anaemia [Unknown]
